FAERS Safety Report 9206166 (Version 1)
Quarter: 2013Q1

REPORT INFORMATION
  Report Type: Spontaneous
  Country: US (occurrence: None)
  Receive Date: 20120709
  Receipt Date: 20120709
  Transmission Date: 20140127
  Serious: Yes (Other)
  Sender: FDA-Public Use
  Company Number: PHHY2010US31978

PATIENT
  Sex: Female

DRUGS (1)
  1. GLEEVEC (IMATINIB) UNKNOWN [Suspect]
     Indication: GASTROINTESTINAL STROMAL TUMOUR
     Route: 048
     Dates: start: 2002

REACTIONS (12)
  - Gastrointestinal stromal tumour [None]
  - Incision site pain [None]
  - Fatigue [None]
  - Contusion [None]
  - Yellow skin [None]
  - Arthralgia [None]
  - Myalgia [None]
  - Abdominal pain [None]
  - Muscle spasms [None]
  - Drug intolerance [None]
  - Asthenia [None]
  - Neoplasm recurrence [None]
